FAERS Safety Report 5632101-4 (Version None)
Quarter: 2008Q1

REPORT INFORMATION
  Report Type: 
  Country: None (occurrence: None)
  Receive Date: 20080220
  Receipt Date: 20080215
  Transmission Date: 20080703
  Serious: Yes (Congenital Anomaly)
  Sender: FDA-Public Use
  Company Number: B0508225A

PATIENT

DRUGS (2)
  1. ZEFIX [Suspect]
     Indication: HEPATITIS B
     Dosage: 100MG PER DAY
     Dates: start: 20040820
  2. HEPSERA [Suspect]
     Indication: HEPATITIS B
     Dosage: 10MG PER DAY
     Dates: start: 20050720

REACTIONS (2)
  - PATENT DUCTUS ARTERIOSUS [None]
  - TRANSMISSION OF DRUG VIA SEMEN [None]
